FAERS Safety Report 8915560 (Version 6)
Quarter: 2013Q3

REPORT INFORMATION
  Report Type: Report from Study
  Country: CA (occurrence: CA)
  Receive Date: 20121119
  Receipt Date: 20130729
  Transmission Date: 20140515
  Serious: Yes (Death, Hospitalization, Other)
  Sender: FDA-Public Use
  Company Number: CA-INCYTE CORPORATION-2012IN002318

PATIENT
  Age: 91 Year
  Sex: Male

DRUGS (3)
  1. JAKAVI [Suspect]
     Indication: MYELOFIBROSIS
     Dosage: 10 MG, QD
     Route: 048
     Dates: start: 20121101
  2. JAKAVI [Suspect]
     Dosage: 10 MG, BID
     Route: 048
     Dates: start: 201211
  3. EFFEXOR [Concomitant]

REACTIONS (10)
  - Death [Fatal]
  - Fall [Unknown]
  - Urinary tract infection [Unknown]
  - Feeling abnormal [Recovered/Resolved]
  - Body temperature decreased [Unknown]
  - Heart rate decreased [Unknown]
  - Hypotension [Unknown]
  - Hypokinesia [Unknown]
  - Asthenia [Unknown]
  - Dizziness [Unknown]
